FAERS Safety Report 23734649 (Version 1)
Quarter: 2024Q2

REPORT INFORMATION
  Report Type: Spontaneous
  Country: GB (occurrence: None)
  Receive Date: 20240412
  Receipt Date: 20240412
  Transmission Date: 20240716
  Serious: Yes (Hospitalization)
  Sender: FDA-Public Use
  Company Number: 2024A082768

PATIENT
  Age: 60 Year

DRUGS (1)
  1. TEZEPELUMAB [Suspect]
     Active Substance: TEZEPELUMAB
     Indication: Asthma
     Dates: start: 20240322, end: 20240322

REACTIONS (8)
  - Peripheral swelling [Unknown]
  - Cough [Unknown]
  - Throat irritation [Unknown]
  - Vision blurred [Unknown]
  - Abdominal pain upper [Unknown]
  - Vomiting [Unknown]
  - Influenza like illness [Unknown]
  - Asthma [Recovered/Resolved]

NARRATIVE: CASE EVENT DATE: 20240322
